FAERS Safety Report 8791929 (Version 2)
Quarter: 2012Q4

REPORT INFORMATION
  Report Type: 
  Country: US (occurrence: US)
  Receive Date: 20120918
  Receipt Date: 20120924
  Transmission Date: 20130627
  Serious: Yes (Death)
  Sender: FDA-Public Use
  Company Number: US-INCYTE CORPORATION-2012IN001756

PATIENT
  Age: 79 Year
  Sex: Male

DRUGS (4)
  1. JAKAFI [Suspect]
     Indication: MYELOFIBROSIS
     Dosage: UNK
  2. THALIDOMIDE [Concomitant]
  3. LENALIDOMIDE [Concomitant]
  4. HYDROXYUREA [Concomitant]

REACTIONS (1)
  - Death [Fatal]
